FAERS Safety Report 23365210 (Version 1)
Quarter: 2024Q1

REPORT INFORMATION
  Report Type: Report from Study
  Country: US (occurrence: US)
  Receive Date: 20240104
  Receipt Date: 20240104
  Transmission Date: 20240410
  Serious: Yes (Other)
  Sender: FDA-Public Use
  Company Number: US-ALXN-A202212399AA

PATIENT
  Age: 10 Year
  Sex: Female

DRUGS (4)
  1. STRENSIQ [Suspect]
     Active Substance: ASFOTASE ALFA
     Indication: Hypophosphatasia
     Dosage: UNK
     Route: 065
  2. STRENSIQ [Suspect]
     Active Substance: ASFOTASE ALFA
     Dosage: 2 MG/KG, TIW
     Route: 065
  3. STRENSIQ [Suspect]
     Active Substance: ASFOTASE ALFA
     Dosage: 1 MG/KG, 6 DAYS
     Route: 065
  4. STRENSIQ [Suspect]
     Active Substance: ASFOTASE ALFA
     Dosage: 9 MG/KG, QW
     Route: 065
     Dates: start: 2021

REACTIONS (17)
  - Nephrocalcinosis [Unknown]
  - Dyspnoea [Recovered/Resolved]
  - Urticaria [Recovered/Resolved]
  - Abdominal discomfort [Recovered/Resolved]
  - Movement disorder [Unknown]
  - Pain [Unknown]
  - Therapeutic product effect incomplete [Unknown]
  - Walking distance test abnormal [Unknown]
  - Vitamin B6 increased [Unknown]
  - Corneal deposits [Unknown]
  - Pain in extremity [Recovered/Resolved]
  - Chills [Recovered/Resolved]
  - Drug hypersensitivity [Unknown]
  - Injection site nodule [Unknown]
  - Injection site atrophy [Unknown]
  - Injection site erythema [Unknown]
  - Injection site pain [Unknown]

NARRATIVE: CASE EVENT DATE: 20200904
